FAERS Safety Report 9470185 (Version 1)
Quarter: 2013Q3

REPORT INFORMATION
  Report Type: Spontaneous
  Country: MX (occurrence: MX)
  Receive Date: 20130822
  Receipt Date: 20130822
  Transmission Date: 20140515
  Serious: Yes (Death)
  Sender: FDA-Public Use
  Company Number: MX-UCBSA-095408

PATIENT
  Age: 8 Year
  Sex: Female
  Weight: 21 kg

DRUGS (2)
  1. KEPPRA [Suspect]
     Indication: PARTIAL SEIZURES
     Route: 048
     Dates: start: 201307, end: 20130805
  2. EPIVAL [Concomitant]
     Indication: EPILEPSY
     Route: 048
     Dates: start: 2011, end: 20130805

REACTIONS (1)
  - Sudden death [Fatal]
